FAERS Safety Report 6993726-7 (Version None)
Quarter: 2010Q3

REPORT INFORMATION
  Report Type: 
  Country: None (occurrence: None)
  Receive Date: 20100917
  Receipt Date: 20100908
  Transmission Date: 20110219
  Serious: Yes (Death, Other)
  Sender: FDA-Public Use
  Company Number: US-AMGEN-QUU432306

PATIENT
  Sex: Female
  Weight: 6 kg

DRUGS (2)
  1. NPLATE [Suspect]
     Indication: IDIOPATHIC THROMBOCYTOPENIC PURPURA
     Route: 058
     Dates: start: 20080916, end: 20100209
  2. CORTICOSTEROIDS [Concomitant]
     Dates: start: 20070412

REACTIONS (7)
  - ACUTE MYELOID LEUKAEMIA [None]
  - ANAEMIA [None]
  - DRUG INEFFECTIVE [None]
  - FALL [None]
  - PLATELET DISORDER [None]
  - SUBDURAL HAEMATOMA [None]
  - THERAPEUTIC RESPONSE DECREASED [None]
